FAERS Safety Report 5629953-0 (Version None)
Quarter: 2008Q1

REPORT INFORMATION
  Report Type: 
  Country: None (occurrence: None)
  Receive Date: 20080218
  Receipt Date: 20080206
  Transmission Date: 20080703
  Serious: Yes (Hospitalization)
  Sender: FDA-Public Use
  Company Number: JP-ROCHE-546532

PATIENT
  Age: 54 Year
  Sex: Male

DRUGS (1)
  1. PEGASYS [Suspect]
     Route: 058
     Dates: start: 20080124

REACTIONS (1)
  - LYMPHADENOPATHY [None]
